FAERS Safety Report 4400785-4 (Version None)
Quarter: 2004Q3

REPORT INFORMATION
  Report Type: 
  Country: None (occurrence: None)
  Receive Date: 20040907
  Receipt Date: 20030606
  Transmission Date: 20050211
  Serious: No
  Sender: FDA-Public Use
  Company Number: US-BRISTOL-MYERS SQUIBB COMPANY-12295598

PATIENT
  Age: 63 Year
  Sex: Male

DRUGS (2)
  1. COUMADIN [Suspect]
     Indication: HEPARIN-INDUCED THROMBOCYTOPENIA
     Route: 048
  2. ARGATROBAN [Interacting]

REACTIONS (2)
  - DRUG INTERACTION [None]
  - INTERNATIONAL NORMALISED RATIO INCREASED [None]
